FAERS Safety Report 20668453 (Version 1)
Quarter: 2022Q2

REPORT INFORMATION
  Report Type: Spontaneous
  Country: US (occurrence: None)
  Receive Date: 20220402
  Receipt Date: 20220402
  Transmission Date: 20220720
  Serious: Yes (Hospitalization, Other)
  Sender: FDA-Public Use
  Company Number: None

PATIENT
  Age: 31 Year
  Sex: Male
  Weight: 72 kg

DRUGS (1)
  1. ESCITALOPRAM [Suspect]
     Active Substance: ESCITALOPRAM OXALATE
     Indication: Anxiety
     Dates: start: 20220301, end: 20220302

REACTIONS (6)
  - Insomnia [None]
  - Panic attack [None]
  - Loss of libido [None]
  - Hypoaesthesia [None]
  - Night sweats [None]
  - Syncope [None]

NARRATIVE: CASE EVENT DATE: 20220304
